FAERS Safety Report 9843808 (Version 1)
Quarter: 2013Q4

REPORT INFORMATION
  Report Type: Spontaneous
  Country: US (occurrence: None)
  Receive Date: 20131223
  Receipt Date: 20131223
  Transmission Date: 20140711
  Serious: No
  Sender: FDA-Public Use
  Company Number: 1000050137

PATIENT
  Age: 84 Year
  Sex: Male

DRUGS (9)
  1. LINZESS [Suspect]
     Indication: CONSTIPATION
     Dosage: 290 MCG (290 MCG, 1 IN 1 D), ORAL
     Route: 048
     Dates: start: 20131011
  2. FUROSEMIDE (FUROSEMIDE) (FUROSEMIDE) [Concomitant]
  3. OMEPRAZOLE (OMEPRAZOLE) (OMEPRAZOLE) [Concomitant]
  4. LOSARTAN (LOSARTAN) (LOSARTAN) [Concomitant]
  5. CARVEDILOL (CARVEDILOL) (CARVEDILOL) [Concomitant]
  6. ALLOPURINOL (ALLOPURINIOL) (ALLOPURINOL) [Concomitant]
  7. NORVASC (AMLODIPINE BESILATE) (AMLODIPINE BESILATE) [Concomitant]
  8. ASPIRIN (ACETYLSALICYLIC ACID) (ACETYLSALICYILIC ACID) [Concomitant]
  9. PRESERVISION (VITEYES) (VITEYES) [Concomitant]

REACTIONS (2)
  - Diarrhoea [None]
  - Abdominal pain [None]
